FAERS Safety Report 12457565 (Version 1)
Quarter: 2016Q2

REPORT INFORMATION
  Report Type: Spontaneous
  Country: US (occurrence: US)
  Receive Date: 20160610
  Receipt Date: 20160610
  Transmission Date: 20160815
  Serious: No
  Sender: FDA-Public Use
  Company Number: US-ACTELION-A-US2016-137048

PATIENT
  Age: 39 Year
  Sex: Female

DRUGS (11)
  1. FUROSEMIDE. [Concomitant]
     Active Substance: FUROSEMIDE
  2. TRADJENTA [Concomitant]
     Active Substance: LINAGLIPTIN
  3. RISPERIDONE. [Concomitant]
     Active Substance: RISPERIDONE
  4. PROZAC [Concomitant]
     Active Substance: FLUOXETINE HYDROCHLORIDE
  5. OPSUMIT [Suspect]
     Active Substance: MACITENTAN
     Indication: PULMONARY ARTERIAL HYPERTENSION
     Dosage: 10 MG, QD
     Route: 048
     Dates: start: 20150909
  6. LISINOPRIL. [Concomitant]
     Active Substance: LISINOPRIL
  7. JANUVIA [Concomitant]
     Active Substance: SITAGLIPTIN PHOSPHATE
  8. SILDENAFIL. [Concomitant]
     Active Substance: SILDENAFIL
  9. NOVOLOG [Concomitant]
     Active Substance: INSULIN ASPART
  10. SIMVASTATIN. [Concomitant]
     Active Substance: SIMVASTATIN
  11. FENOFIBRATE. [Concomitant]
     Active Substance: FENOFIBRATE

REACTIONS (1)
  - Increased appetite [Not Recovered/Not Resolved]

NARRATIVE: CASE EVENT DATE: 20160125
